FAERS Safety Report 6927643-5 (Version None)
Quarter: 2010Q3

REPORT INFORMATION
  Report Type: 
  Country: None (occurrence: None)
  Receive Date: 20100816
  Receipt Date: 20100816
  Transmission Date: 20110219
  Serious: No
  Sender: FDA-Public Use
  Company Number: None

PATIENT
  Age: 35 Year
  Sex: Female

DRUGS (1)
  1. PERCOCET [Suspect]
     Indication: PAIN
     Dosage: TWO TABLETS EVERY 4 HOURS PO
     Route: 048
     Dates: start: 20100708, end: 20100710

REACTIONS (1)
  - DRUG HYPERSENSITIVITY [None]
